FAERS Safety Report 4560481-X (Version None)
Quarter: 2005Q1

REPORT INFORMATION
  Report Type: 
  Country: None (occurrence: None)
  Receive Date: 20050125
  Receipt Date: 20030605
  Transmission Date: 20050727
  Serious: Yes (Hospitalization, Disabling, Other)
  Sender: FDA-Public Use
  Company Number: US-MERCK-0306USA00869

PATIENT
  Age: 49 Year
  Sex: Female

DRUGS (7)
  1. VIOXX [Suspect]
     Route: 048
     Dates: start: 20010101, end: 20010801
  2. VIOXX [Suspect]
     Route: 048
     Dates: start: 20030916
  3. VIOXX [Suspect]
     Route: 065
  4. CELEBREX [Concomitant]
     Route: 048
     Dates: start: 20000118, end: 20010801
  5. NORCO [Concomitant]
     Route: 065
  6. FLEXERIL [Concomitant]
     Route: 065
  7. MOTRIN [Concomitant]
     Route: 065
     Dates: end: 20010523

REACTIONS (26)
  - ADVERSE EVENT [None]
  - ANGINA PECTORIS [None]
  - ANXIETY [None]
  - ARTHRALGIA [None]
  - ATROPHY [None]
  - BACK PAIN [None]
  - CHRONIC OBSTRUCTIVE PULMONARY DISEASE [None]
  - DECREASED APPETITE [None]
  - DYSPNOEA [None]
  - ELECTROCARDIOGRAM ABNORMAL [None]
  - ELECTROCARDIOGRAM ST SEGMENT DEPRESSION [None]
  - EXOSTOSIS [None]
  - FLATULENCE [None]
  - GENERAL SYMPTOM [None]
  - ISCHAEMIA [None]
  - LUMBAR SPINAL STENOSIS [None]
  - NECK PAIN [None]
  - OEDEMA PERIPHERAL [None]
  - PAIN IN EXTREMITY [None]
  - PALPITATIONS [None]
  - PHARYNGITIS [None]
  - RENAL CYST [None]
  - RENAL FAILURE CHRONIC [None]
  - SEASONAL ALLERGY [None]
  - SINUS BRADYCARDIA [None]
  - SINUSITIS [None]
